FAERS Safety Report 26200651 (Version 1)
Quarter: 2025Q4

REPORT INFORMATION
  Report Type: Report from Study
  Country: US (occurrence: US)
  Receive Date: 20251225
  Receipt Date: 20251225
  Transmission Date: 20260117
  Serious: Yes (Hospitalization)
  Sender: ABBVIE
  Company Number: US-ABBVIE-6594425

PATIENT
  Age: 74 Year
  Sex: Male

DRUGS (2)
  1. DUOPA [Suspect]
     Active Substance: CARBIDOPA\LEVODOPA
     Indication: Product used for unknown indication
     Route: 050
     Dates: start: 20240320
  2. DUOPA [Suspect]
     Active Substance: CARBIDOPA\LEVODOPA

REACTIONS (8)
  - Joint noise [Unknown]
  - Sepsis [Recovering/Resolving]
  - Device occlusion [Not Recovered/Not Resolved]
  - Device placement issue [Unknown]
  - Pneumonia [Recovering/Resolving]
  - Hypotension [Recovered/Resolved]
  - Arthralgia [Unknown]
  - Device breakage [Not Recovered/Not Resolved]

NARRATIVE: CASE EVENT DATE: 20251001
